FAERS Safety Report 22062950 (Version 3)
Quarter: 2023Q2

REPORT INFORMATION
  Report Type: Report from Study
  Country: US (occurrence: US)
  Receive Date: 20230306
  Receipt Date: 20230426
  Transmission Date: 20230721
  Serious: Yes (Other)
  Sender: FDA-Public Use
  Company Number: US-ABBVIE-4326685

PATIENT
  Age: 77 Year
  Sex: Male
  Weight: 92.986 kg

DRUGS (5)
  1. RINVOQ [Suspect]
     Active Substance: UPADACITINIB
     Indication: Rheumatoid arthritis
     Dosage: FORM STRENGTH: 15 MILLIGRAM, STOP DATE TEXT: 24-JAN-2023 OR 25-JAN-2023
     Route: 048
     Dates: start: 20220805, end: 20230124
  2. RINVOQ [Suspect]
     Active Substance: UPADACITINIB
     Indication: Rheumatoid arthritis
     Dosage: FORM STRENGTH: 15 MILLIGRAM
     Route: 048
     Dates: start: 202302
  3. DORZOLAMIDE [Concomitant]
     Active Substance: DORZOLAMIDE
     Indication: Glaucoma
  4. TAMSULOSIN [Concomitant]
     Active Substance: TAMSULOSIN
     Indication: Urinary incontinence
  5. PENTASA [Concomitant]
     Active Substance: MESALAMINE
     Indication: Urinary incontinence

REACTIONS (1)
  - Osteoarthritis [Recovering/Resolving]

NARRATIVE: CASE EVENT DATE: 20230101
